FAERS Safety Report 9912042 (Version 1)
Quarter: 2014Q1

REPORT INFORMATION
  Report Type: Spontaneous
  Country: US (occurrence: US)
  Receive Date: 20140219
  Receipt Date: 20140219
  Transmission Date: 20141002
  Serious: Yes (Other)
  Sender: FDA-Public Use
  Company Number: US-BAXTER-2014BAX007967

PATIENT
  Age: 14 Year
  Sex: Female

DRUGS (4)
  1. GAMMAGARD LIQUID [Suspect]
     Indication: GUILLAIN-BARRE SYNDROME
  2. AMPHOTERICIN B [Concomitant]
     Indication: PRODUCT USED FOR UNKNOWN INDICATION
  3. PREDNISONE [Concomitant]
     Indication: PRODUCT USED FOR UNKNOWN INDICATION
  4. RITUXIMAB [Concomitant]
     Indication: PRODUCT USED FOR UNKNOWN INDICATION
     Dosage: 4 DOSES

REACTIONS (1)
  - Drug ineffective [Not Recovered/Not Resolved]
